FAERS Safety Report 8441440-3 (Version None)
Quarter: 2012Q2

REPORT INFORMATION
  Report Type: 
  Country: None (occurrence: None)
  Receive Date: 20120615
  Receipt Date: 20110901
  Transmission Date: 20120825
  Serious: No
  Sender: FDA-Public Use
  Company Number: US-NOVEN-11US003115

PATIENT
  Sex: Male

DRUGS (5)
  1. DAYTRANA [Suspect]
     Indication: SENSORY INTEGRATIVE DYSFUNCTION
     Dosage: 10 MG, QD
     Route: 062
     Dates: start: 20110101
  2. CLARITIN                           /00413701/ [Concomitant]
     Indication: HYPERSENSITIVITY
     Dosage: UNK
     Route: 048
  3. FLONASE [Concomitant]
     Indication: HYPERSENSITIVITY
     Route: 045
  4. FLOVENT [Concomitant]
     Indication: ASTHMA
     Route: 049
  5. ALBUTEROL [Concomitant]
     Indication: ASTHMA
     Route: 049

REACTIONS (4)
  - INCORRECT DRUG ADMINISTRATION DURATION [None]
  - NO ADVERSE EVENT [None]
  - OFF LABEL USE [None]
  - PRODUCT QUALITY ISSUE [None]
